FAERS Safety Report 19505172 (Version 1)
Quarter: 2021Q3

REPORT INFORMATION
  Report Type: Report from Study
  Country: US (occurrence: US)
  Receive Date: 20210707
  Receipt Date: 20210707
  Transmission Date: 20211014
  Serious: Yes (Other)
  Sender: FDA-Public Use
  Company Number: US-ASTRAZENECA-2021A417790

PATIENT
  Age: 29151 Day
  Sex: Male
  Weight: 105.2 kg

DRUGS (8)
  1. CALQUENCE [Suspect]
     Active Substance: ACALABRUTINIB
     Indication: CHRONIC LYMPHOCYTIC LEUKAEMIA
     Route: 048
     Dates: start: 20210505
  2. CALQUENCE [Suspect]
     Active Substance: ACALABRUTINIB
     Indication: CHRONIC LYMPHOCYTIC LEUKAEMIA
     Route: 048
     Dates: start: 20210511
  3. ALBUTEROL. [Concomitant]
     Active Substance: ALBUTEROL
  4. VITAMIN B12 [Concomitant]
     Active Substance: CYANOCOBALAMIN
  5. CALQUENCE [Suspect]
     Active Substance: ACALABRUTINIB
     Indication: CHRONIC LYMPHOCYTIC LEUKAEMIA
     Route: 048
     Dates: start: 20210511
  6. BICALUTAMIDE. [Concomitant]
     Active Substance: BICALUTAMIDE
  7. TRELEG ELLIPTA [Concomitant]
     Dosage: 100?62.5?25MCG
  8. MIRABEGRON [Concomitant]
     Active Substance: MIRABEGRON

REACTIONS (4)
  - Thrombocytopenia [Unknown]
  - Stomatitis [Not Recovered/Not Resolved]
  - Dizziness [Unknown]
  - Headache [Not Recovered/Not Resolved]

NARRATIVE: CASE EVENT DATE: 20210517
